FAERS Safety Report 16633374 (Version 1)
Quarter: 2019Q3

REPORT INFORMATION
  Report Type: Spontaneous
  Country: ZA (occurrence: ZA)
  Receive Date: 20190725
  Receipt Date: 20190725
  Transmission Date: 20191004
  Serious: Yes (Hospitalization)
  Sender: FDA-Public Use
  Company Number: PHHY2019ZA171885

PATIENT
  Sex: Male

DRUGS (1)
  1. GLAUCOSAN [Suspect]
     Active Substance: TIMOLOL MALEATE
     Indication: GLAUCOMA
     Dosage: 0.5 %, UNK
     Route: 065

REACTIONS (1)
  - Dizziness [Unknown]
